FAERS Safety Report 20106595 (Version 2)
Quarter: 2022Q1

REPORT INFORMATION
  Report Type: Spontaneous
  Country: DE (occurrence: DE)
  Receive Date: 20211124
  Receipt Date: 20220114
  Transmission Date: 20220423
  Serious: Yes (Hospitalization)
  Sender: FDA-Public Use
  Company Number: DE-BoehringerIngelheim-2021-BI-140152

PATIENT
  Age: 74 Year
  Sex: Male
  Weight: 98 kg

DRUGS (10)
  1. JARDIANCE [Suspect]
     Active Substance: EMPAGLIFLOZIN
     Indication: Diabetes mellitus
     Route: 048
     Dates: start: 201605, end: 202106
  2. JARDIANCE [Suspect]
     Active Substance: EMPAGLIFLOZIN
     Dosage: 1-0-0-0
     Route: 048
     Dates: start: 202106
  3. ASS 100 - 1A Pharma TAH [Concomitant]
     Indication: Product used for unknown indication
     Dosage: 1-0-0-0
  4. Atrovastatin - 1A Pharma 40 mg [Concomitant]
     Indication: Product used for unknown indication
     Dosage: 0-0-1-0
  5. Glimepirid - 1A Pharma 1 mg [Concomitant]
     Indication: Product used for unknown indication
     Dosage: 1-0-1-0
  6. Metformin 1000 - 1A Pharma [Concomitant]
     Indication: Product used for unknown indication
     Dosage: 1-0-1-0
  7. Metoprololsuccinat - 1A Pharma [Concomitant]
     Indication: Product used for unknown indication
     Dosage: 1-0-0-0
  8. Ramipril - 1A Pharma 5 mg [Concomitant]
     Indication: Product used for unknown indication
     Dosage: 1-0-1-0
  9. Torasemid - 1A Pharma 5 mg [Concomitant]
     Indication: Product used for unknown indication
     Dosage: 1-1-0-0
  10. Tamsulosin - 1A Pharma 0.4 mg [Concomitant]
     Indication: Product used for unknown indication
     Dosage: 1-0-0-0

REACTIONS (2)
  - Urinary tract infection [Recovered/Resolved]
  - Urinary retention [Recovered/Resolved]

NARRATIVE: CASE EVENT DATE: 20211122
